FAERS Safety Report 6539799-7 (Version None)
Quarter: 2010Q1

REPORT INFORMATION
  Report Type: 
  Country: None (occurrence: None)
  Receive Date: 20100115
  Receipt Date: 20100106
  Transmission Date: 20100710
  Serious: Yes (Other)
  Sender: FDA-Public Use
  Company Number: US-PFIZER INC-2010002733

PATIENT
  Sex: Female
  Weight: 86.168 kg

DRUGS (3)
  1. ZYVOX [Suspect]
     Indication: CELLULITIS
     Dosage: 600 MG, SINGLE DOSE
     Dates: start: 20091231, end: 20091231
  2. ZYVOX [Suspect]
     Dosage: 600 MG, TWO DOSES
     Dates: start: 20100101, end: 20100101
  3. ZYVOX [Suspect]
     Dosage: 600 MG, SINGLE DOSE
     Dates: start: 20100102, end: 20100102

REACTIONS (2)
  - RASH GENERALISED [None]
  - TONGUE DISORDER [None]
